FAERS Safety Report 17811587 (Version 1)
Quarter: 2020Q2

REPORT INFORMATION
  Report Type: Spontaneous
  Country: ZA (occurrence: ZA)
  Receive Date: 20200521
  Receipt Date: 20200521
  Transmission Date: 20200714
  Serious: Yes (Other)
  Sender: FDA-Public Use
  Company Number: ZA-MYLANLABS-2020M1049780

PATIENT
  Age: 44 Year
  Sex: Female
  Weight: 90 kg

DRUGS (6)
  1. OGIVRI [Suspect]
     Active Substance: TRASTUZUMAB-DKST
     Indication: BREAST CANCER
     Dosage: 380 MILLIGRAM, QW
     Route: 042
     Dates: start: 20200505
  2. BETANOID                           /00008501/ [Concomitant]
     Active Substance: BETAMETHASONE
     Dosage: UNK, (10 TABS TDS)
     Dates: start: 20200504
  3. ZANTAC [Concomitant]
     Active Substance: RANITIDINE HYDROCHLORIDE
     Indication: BREAST CANCER
     Dosage: 50 MILLIGRAM, (WKD)
     Route: 042
     Dates: start: 20200505, end: 20200513
  4. PHENERGAN [Concomitant]
     Active Substance: PROMETHAZINE HYDROCHLORIDE
     Indication: BREAST CANCER
     Dosage: 25 GRAM, (WKD)
     Route: 042
     Dates: start: 20200505, end: 20200513
  5. GRANISETRON [Concomitant]
     Active Substance: GRANISETRON
     Dosage: 3 MILLIGRAM, (WKD)
     Route: 042
     Dates: start: 20200505, end: 20200513
  6. TAXOL [Concomitant]
     Active Substance: PACLITAXEL
     Indication: BREAST CANCER
     Dosage: 160 MILLIGRAM, (WKD)
     Route: 042
     Dates: start: 20200505, end: 20200513

REACTIONS (3)
  - Headache [Unknown]
  - Herpes virus infection [Unknown]
  - Musculoskeletal stiffness [Unknown]

NARRATIVE: CASE EVENT DATE: 20200507
